FAERS Safety Report 18987168 (Version 3)
Quarter: 2021Q1

REPORT INFORMATION
  Report Type: Spontaneous
  Country: DK (occurrence: DK)
  Receive Date: 20210309
  Receipt Date: 20210323
  Transmission Date: 20210420
  Serious: Yes (Hospitalization)
  Sender: FDA-Public Use
  Company Number: DK-ACCORD-218959

PATIENT
  Age: 75 Year
  Sex: Female
  Weight: 59 kg

DRUGS (50)
  1. FLUCONAZOLE. [Concomitant]
     Active Substance: FLUCONAZOLE
     Dates: start: 20201205
  2. FOSCARNET [Concomitant]
     Active Substance: FOSCARNET
     Dates: start: 20210118, end: 20210121
  3. GANCICLOVIR. [Concomitant]
     Active Substance: GANCICLOVIR
     Dates: start: 20210114, end: 20210118
  4. EPCORITAMAB. [Suspect]
     Active Substance: EPCORITAMAB
     Indication: DIFFUSE LARGE B-CELL LYMPHOMA STAGE IV
     Route: 058
     Dates: start: 20210203, end: 20210226
  5. EPCORITAMAB. [Suspect]
     Active Substance: EPCORITAMAB
     Indication: DIFFUSE LARGE B-CELL LYMPHOMA STAGE IV
     Route: 058
     Dates: start: 20201207, end: 20201207
  6. GABAPENTIN. [Concomitant]
     Active Substance: GABAPENTIN
     Dates: start: 20190309
  7. PREDNISOLONE. [Concomitant]
     Active Substance: PREDNISOLONE
     Dates: start: 20201130, end: 20210209
  8. CASPOFUNGIN [Concomitant]
     Active Substance: CASPOFUNGIN
     Dates: start: 20210222, end: 20210226
  9. VANCOMYCIN [Concomitant]
     Active Substance: VANCOMYCIN
     Dates: start: 20210106, end: 20210228
  10. DEXAMETHASONE. [Concomitant]
     Active Substance: DEXAMETHASONE
     Dates: start: 20210113, end: 20210117
  11. VANCOMYCIN [Concomitant]
     Active Substance: VANCOMYCIN
     Dates: start: 20210106, end: 20210116
  12. PARACETAMOL [Concomitant]
     Active Substance: ACETAMINOPHEN
     Dates: start: 20201130, end: 20210203
  13. IMMUNOGLOBULIN [Concomitant]
     Dates: start: 20210213, end: 20210213
  14. METRONIDAZOLE. [Concomitant]
     Active Substance: METRONIDAZOLE
     Dates: start: 20210222, end: 20210226
  15. OXALIPLATIN. [Suspect]
     Active Substance: OXALIPLATIN
     Indication: DIFFUSE LARGE B-CELL LYMPHOMA STAGE IV
     Dosage: SINGLE
     Route: 042
     Dates: start: 20201214, end: 20201214
  16. EPCORITAMAB. [Suspect]
     Active Substance: EPCORITAMAB
     Indication: DIFFUSE LARGE B-CELL LYMPHOMA STAGE IV
     Route: 058
     Dates: start: 20201130, end: 20201130
  17. EPCORITAMAB. [Suspect]
     Active Substance: EPCORITAMAB
     Indication: DIFFUSE LARGE B-CELL LYMPHOMA STAGE IV
     Dosage: PRIMING DOSE
     Route: 058
     Dates: start: 20210106, end: 20210106
  18. DIAZEPAM. [Concomitant]
     Active Substance: DIAZEPAM
     Dates: start: 20200710
  19. POTASSIUM [Concomitant]
     Active Substance: POTASSIUM
     Dates: start: 20181011
  20. LAMOTRIGINE. [Concomitant]
     Active Substance: LAMOTRIGINE
     Dates: start: 20150702
  21. PANTOPRAZOLE [Concomitant]
     Active Substance: PANTOPRAZOLE
     Dates: start: 20180903
  22. SULFAMETHOXAZOLE/TRIMETHOPRIM [Concomitant]
     Active Substance: SULFAMETHOXAZOLE\TRIMETHOPRIM
     Dates: start: 20210106
  23. GENTAMICIN. [Concomitant]
     Active Substance: GENTAMICIN
     Dates: start: 20210111, end: 20210121
  24. SODIUM PICOSULFATE [Concomitant]
     Active Substance: SODIUM PICOSULFATE
     Dates: start: 20200210
  25. FILGRASTIM [Concomitant]
     Active Substance: FILGRASTIM
     Dates: start: 20210210
  26. VALACICLOVIR [Concomitant]
     Active Substance: VALACYCLOVIR HYDROCHLORIDE
     Dates: start: 20210205, end: 20210210
  27. GEMCITABINE/GEMCITABINE HYDROCHLORIDE [Suspect]
     Active Substance: GEMCITABINE\GEMCITABINE HYDROCHLORIDE
     Indication: DIFFUSE LARGE B-CELL LYMPHOMA STAGE IV
     Dosage: SONGLE
     Route: 042
     Dates: start: 20201130, end: 20201130
  28. GEMCITABINE/GEMCITABINE HYDROCHLORIDE [Suspect]
     Active Substance: GEMCITABINE\GEMCITABINE HYDROCHLORIDE
     Indication: DIFFUSE LARGE B-CELL LYMPHOMA STAGE IV
     Dosage: SONGLE
     Route: 042
     Dates: start: 20201214, end: 20201214
  29. OXALIPLATIN. [Suspect]
     Active Substance: OXALIPLATIN
     Indication: DIFFUSE LARGE B-CELL LYMPHOMA STAGE IV
     Dosage: SINGLE
     Route: 042
     Dates: start: 20210203
  30. OXALIPLATIN. [Suspect]
     Active Substance: OXALIPLATIN
     Indication: DIFFUSE LARGE B-CELL LYMPHOMA STAGE IV
     Dosage: SINGLE
     Route: 042
     Dates: start: 20210106, end: 20210106
  31. ALENDRONIC ACID [Concomitant]
     Active Substance: ALENDRONIC ACID
     Dates: start: 20150602, end: 20210226
  32. GEMCITABINE/GEMCITABINE HYDROCHLORIDE [Suspect]
     Active Substance: GEMCITABINE\GEMCITABINE HYDROCHLORIDE
     Indication: DIFFUSE LARGE B-CELL LYMPHOMA STAGE IV
     Dosage: SONGLE
     Route: 042
     Dates: start: 20210203
  33. GENTAMICIN. [Concomitant]
     Active Substance: GENTAMICIN
     Dosage: 280 MG ONCE?DAILY
     Route: 042
     Dates: start: 20210209, end: 20210224
  34. PIPERACILLIN/TAZOBACTAM [Concomitant]
     Active Substance: PIPERACILLIN SODIUM\TAZOBACTAM SODIUM
     Dosage: 12/1.5 G, CONTINUOUS
     Route: 042
     Dates: start: 20210130, end: 20210226
  35. GEMCITABINE/GEMCITABINE HYDROCHLORIDE [Suspect]
     Active Substance: GEMCITABINE\GEMCITABINE HYDROCHLORIDE
     Indication: DIFFUSE LARGE B-CELL LYMPHOMA STAGE IV
     Dosage: SONGLE
     Route: 042
     Dates: start: 20210106, end: 20210106
  36. MAGNESIUM [Concomitant]
     Active Substance: MAGNESIUM
     Dates: start: 20210103
  37. MIRTAZAPINE. [Concomitant]
     Active Substance: MIRTAZAPINE
     Dates: start: 20180621
  38. CETIRIZINE [Concomitant]
     Active Substance: CETIRIZINE HYDROCHLORIDE
     Dates: start: 20201130, end: 20210203
  39. GEMCITABINE/GEMCITABINE HYDROCHLORIDE [Suspect]
     Active Substance: GEMCITABINE\GEMCITABINE HYDROCHLORIDE
     Indication: DIFFUSE LARGE B-CELL LYMPHOMA STAGE IV
     Dosage: SONGLE
     Route: 042
     Dates: start: 20210203
  40. EPCORITAMAB. [Suspect]
     Active Substance: EPCORITAMAB
     Indication: DIFFUSE LARGE B-CELL LYMPHOMA STAGE IV
     Route: 058
     Dates: start: 20201214, end: 20201221
  41. DAPTOMYCIN. [Concomitant]
     Active Substance: DAPTOMYCIN
     Dates: start: 20210111, end: 20210120
  42. FUROSEMIDE. [Concomitant]
     Active Substance: FUROSEMIDE
     Dates: start: 20201216
  43. LINEZOLID. [Concomitant]
     Active Substance: LINEZOLID
     Dates: start: 20210111, end: 20210120
  44. MACROGOL/MACROGOL STEARATE [Concomitant]
     Active Substance: POLYETHYLENE GLYCOLS
     Dates: start: 20190216
  45. OXYCODONE [Concomitant]
     Active Substance: OXYCODONE
     Dates: start: 20201122
  46. PIPERACILLIN/TAZOBACTAM [Concomitant]
     Active Substance: PIPERACILLIN SODIUM\TAZOBACTAM SODIUM
     Dates: start: 20210111, end: 20210120
  47. VALGANCICLOVIR/VALGANCICLOVIR HYDROCHLORIDE [Concomitant]
     Active Substance: VALGANCICLOVIR
     Dates: start: 20210122, end: 20210204
  48. ACICLOVIR [Concomitant]
     Active Substance: ACYCLOVIR
     Dates: start: 20210211, end: 20210217
  49. OXALIPLATIN. [Suspect]
     Active Substance: OXALIPLATIN
     Indication: DIFFUSE LARGE B-CELL LYMPHOMA STAGE IV
     Dosage: SINGLE
     Route: 042
     Dates: start: 20201130, end: 20201130
  50. EPCORITAMAB. [Suspect]
     Active Substance: EPCORITAMAB
     Indication: DIFFUSE LARGE B-CELL LYMPHOMA STAGE IV
     Route: 058
     Dates: start: 20210125, end: 20210125

REACTIONS (3)
  - Off label use [Unknown]
  - Pyrexia [Recovered/Resolved]
  - Immune effector cell-associated neurotoxicity syndrome [Recovered/Resolved]

NARRATIVE: CASE EVENT DATE: 20210130
